FAERS Safety Report 16656582 (Version 3)
Quarter: 2019Q3

REPORT INFORMATION
  Report Type: Spontaneous
  Country: JP (occurrence: JP)
  Receive Date: 20190801
  Receipt Date: 20190919
  Transmission Date: 20191004
  Serious: Yes (Other)
  Sender: FDA-Public Use
  Company Number: JP-PFIZER INC-2019322918

PATIENT
  Age: 75 Year
  Sex: Female

DRUGS (5)
  1. ENBREL [Suspect]
     Active Substance: ETANERCEPT
     Dosage: UNK
     Route: 058
  2. KETOTIFEN [Suspect]
     Active Substance: KETOTIFEN
     Dosage: 1 MG, UNK
     Route: 048
  3. DICLOFENAC SODIUM. [Suspect]
     Active Substance: DICLOFENAC SODIUM
     Dosage: 25 MG, 3X/DAY
     Route: 048
     Dates: start: 20150528
  4. LYRICA [Suspect]
     Active Substance: PREGABALIN
     Indication: RHEUMATIC DISORDER
     Dosage: 75 MG, 2X/DAY
     Route: 048
     Dates: start: 20150528
  5. METHOTREXATE SODIUM. [Suspect]
     Active Substance: METHOTREXATE SODIUM
     Dosage: 16 MG, WEEKLY (AS REPORTED 14 MG AND 2 MG)
     Route: 048
     Dates: start: 20150528

REACTIONS (4)
  - Lacrimation decreased [Unknown]
  - Product use in unapproved indication [Unknown]
  - Retinal haemorrhage [Unknown]
  - Off label use [Unknown]

NARRATIVE: CASE EVENT DATE: 2015
